FAERS Safety Report 21384261 (Version 1)
Quarter: 2022Q3

REPORT INFORMATION
  Report Type: Spontaneous
  Country: US (occurrence: None)
  Receive Date: 20220928
  Receipt Date: 20220928
  Transmission Date: 20221026
  Serious: No
  Sender: FDA-Public Use
  Company Number: 2022A317370

PATIENT
  Age: 70 Year
  Sex: Male
  Weight: 87.5 kg

DRUGS (1)
  1. SYMBICORT [Suspect]
     Active Substance: BUDESONIDE\FORMOTEROL FUMARATE DIHYDRATE
     Indication: Chronic obstructive pulmonary disease
     Dosage: 80/4.5MCG 2 PUFFS TWICE A DAY
     Route: 055
     Dates: start: 2021

REACTIONS (3)
  - Micturition urgency [Recovered/Resolved]
  - Pollakiuria [Recovered/Resolved]
  - Product use issue [Unknown]

NARRATIVE: CASE EVENT DATE: 20210101
